FAERS Safety Report 5448255-9 (Version None)
Quarter: 2007Q3

REPORT INFORMATION
  Report Type: 
  Country: None (occurrence: None)
  Receive Date: 20070911
  Receipt Date: 20070904
  Transmission Date: 20080115
  Serious: Yes (Other)
  Sender: FDA-Public Use
  Company Number: PHBS2007JP08764

PATIENT
  Age: 18 Year
  Sex: Male
  Weight: 60 kg

DRUGS (10)
  1. GLEEVEC [Suspect]
     Indication: ACUTE LYMPHOCYTIC LEUKAEMIA
     Dosage: 600 MG/D
     Route: 048
     Dates: start: 20070430, end: 20070520
  2. DAUNORUBICIN HCL [Suspect]
     Indication: ACUTE LYMPHOCYTIC LEUKAEMIA
     Dosage: 100 MG/D
     Route: 042
     Dates: start: 20070426, end: 20070428
  3. PREDONINE [Concomitant]
     Indication: ACUTE LYMPHOCYTIC LEUKAEMIA
     Dosage: 100 MG/D
     Route: 048
     Dates: start: 20070419, end: 20070516
  4. ENDOXAN [Suspect]
     Indication: ACUTE LYMPHOCYTIC LEUKAEMIA
     Dosage: 2100 MG/D
     Route: 042
     Dates: start: 20070426, end: 20070426
  5. ONCOVIN [Suspect]
     Indication: ACUTE LYMPHOCYTIC LEUKAEMIA
     Dosage: 2 MG/D
     Route: 042
     Dates: start: 20070426, end: 20070517
  6. STEROIDS NOS [Concomitant]
     Route: 065
     Dates: start: 20070419
  7. GRAN [Concomitant]
     Indication: ACUTE LYMPHOCYTIC LEUKAEMIA
     Dosage: 150 UG/D
     Route: 058
     Dates: start: 20070429, end: 20070511
  8. REMINARON [Concomitant]
     Indication: DISSEMINATED INTRAVASCULAR COAGULATION
     Dosage: 150 MG/D
     Route: 042
     Dates: start: 20070419, end: 20070504
  9. MINOPHAGEN C [Concomitant]
     Indication: HEPATIC FUNCTION ABNORMAL
     Dosage: 60 ML/D
     Route: 042
     Dates: start: 20070422, end: 20070504
  10. OMEGACIN [Concomitant]
     Indication: NEUTROPENIA
     Dosage: 0.9 G/D
     Route: 042
     Dates: start: 20070417, end: 20070512

REACTIONS (1)
  - PNEUMATOSIS INTESTINALIS [None]
